FAERS Safety Report 6168678-2 (Version None)
Quarter: 2009Q2

REPORT INFORMATION
  Report Type: 
  Country: None (occurrence: None)
  Receive Date: 20090427
  Receipt Date: 20090417
  Transmission Date: 20091009
  Serious: Yes (Death, Hospitalization)
  Sender: FDA-Public Use
  Company Number: JP-WYE-H08729409

PATIENT
  Sex: Female

DRUGS (10)
  1. RHEUMATREX [Suspect]
     Indication: RHEUMATOID ARTHRITIS
     Route: 048
     Dates: end: 20090316
  2. FUROSEMIDE [Concomitant]
     Route: 048
     Dates: end: 20090316
  3. HYPEN [Suspect]
     Route: 048
     Dates: start: 20090201, end: 20090316
  4. AZULFIDINE EN-TABS [Concomitant]
     Route: 048
     Dates: end: 20090316
  5. RIMATIL [Concomitant]
     Indication: RHEUMATOID ARTHRITIS
     Route: 048
     Dates: end: 20090316
  6. LIPITOR [Concomitant]
     Indication: HYPERLIPIDAEMIA
     Route: 048
     Dates: end: 20090316
  7. BENET [Concomitant]
     Indication: OSTEOPOROSIS
     Route: 048
     Dates: end: 20090316
  8. LANSOPRAZOLE [Concomitant]
     Route: 048
     Dates: end: 20090316
  9. BLOPRESS [Concomitant]
     Indication: HYPERTENSION
     Route: 048
     Dates: end: 20090316
  10. PREDNISOLONE [Concomitant]
     Indication: RHEUMATOID ARTHRITIS
     Route: 048
     Dates: end: 20090316

REACTIONS (7)
  - BLOOD PRESSURE DECREASED [None]
  - COLITIS ISCHAEMIC [None]
  - DRUG LEVEL INCREASED [None]
  - NECROTISING COLITIS [None]
  - PANCYTOPENIA [None]
  - RENAL IMPAIRMENT [None]
  - SEPTIC SHOCK [None]
